FAERS Safety Report 6608804-1 (Version None)
Quarter: 2010Q1

REPORT INFORMATION
  Report Type: 
  Country: None (occurrence: None)
  Receive Date: 20100224
  Receipt Date: 20100224
  Transmission Date: 20100710
  Serious: No
  Sender: FDA-Public Use
  Company Number: None

PATIENT
  Age: 29 Year
  Sex: Female
  Weight: 67.1324 kg

DRUGS (13)
  1. FUROSEMIDE [Suspect]
     Dosage: 40MG DAY PO
     Route: 048
  2. LISINOPRIL [Suspect]
     Dosage: 2.5MG DAY PO
     Route: 048
  3. POTASSIUM CHLORIDE [Concomitant]
  4. METOPROLOL TARTRATE [Concomitant]
  5. EFFEXOR [Concomitant]
  6. CLONAZEPAM [Concomitant]
  7. ABILIFY [Concomitant]
  8. SEROQUEL [Concomitant]
  9. PRILOSEC [Concomitant]
  10. HYOSCAMINE [Concomitant]
  11. DOCUSATE [Concomitant]
  12. ALBUTEROL [Concomitant]
  13. EPIPEN [Concomitant]

REACTIONS (1)
  - DEHYDRATION [None]
